FAERS Safety Report 21215775 (Version 1)
Quarter: 2022Q3

REPORT INFORMATION
  Report Type: Report from Study
  Country: JP (occurrence: JP)
  Receive Date: 20220816
  Receipt Date: 20220816
  Transmission Date: 20221026
  Serious: Yes (Death, Other)
  Sender: FDA-Public Use
  Company Number: JP-ASTELLAS-2022JP012214

PATIENT
  Age: 81 Year
  Sex: Male
  Weight: 61 kg

DRUGS (1)
  1. ENFORTUMAB VEDOTIN [Suspect]
     Active Substance: ENFORTUMAB VEDOTIN
     Indication: Transitional cell carcinoma
     Route: 065
     Dates: start: 20220309, end: 20220316

REACTIONS (4)
  - Febrile neutropenia [Fatal]
  - Gastrointestinal disorder [Not Recovered/Not Resolved]
  - Liver disorder [Not Recovered/Not Resolved]
  - Decreased appetite [Not Recovered/Not Resolved]

NARRATIVE: CASE EVENT DATE: 20220310
